FAERS Safety Report 10062871 (Version 2)
Quarter: 2014Q2

REPORT INFORMATION
  Report Type: Report from Study
  Country: JP (occurrence: JP)
  Receive Date: 20140407
  Receipt Date: 20140522
  Transmission Date: 20141212
  Serious: Yes (Death, Hospitalization)
  Sender: FDA-Public Use
  Company Number: JP-SA-2014SA042159

PATIENT
  Age: 39 Year
  Sex: Male
  Weight: 64 kg

DRUGS (21)
  1. THYMOGLOBULINE [Suspect]
     Indication: ACUTE GRAFT VERSUS HOST DISEASE
     Route: 042
     Dates: start: 20081224, end: 20081224
  2. THYMOGLOBULINE [Suspect]
     Indication: ACUTE GRAFT VERSUS HOST DISEASE
     Route: 042
     Dates: start: 20081227, end: 20081227
  3. PROGRAF [Suspect]
     Indication: ACUTE GRAFT VERSUS HOST DISEASE
     Route: 065
     Dates: start: 20081021, end: 20090129
  4. SOL-MELCORT [Suspect]
     Indication: ACUTE GRAFT VERSUS HOST DISEASE
     Route: 065
     Dates: end: 20090131
  5. CORTICOSTEROID NOS [Concomitant]
     Indication: ACUTE GRAFT VERSUS HOST DISEASE
     Dates: start: 20081119, end: 20090131
  6. TACROLIMUS [Concomitant]
     Indication: ACUTE GRAFT VERSUS HOST DISEASE
     Dates: start: 20081021, end: 20090129
  7. MYCOPHENOLATE MOFETIL [Concomitant]
     Dates: start: 20081215, end: 20081224
  8. OMEPRAL [Concomitant]
     Indication: PROPHYLAXIS AGAINST GASTROINTESTINAL ULCER
     Dates: end: 20090131
  9. FOSCAVIR [Concomitant]
     Indication: CYTOMEGALOVIRUS ENTEROCOLITIS
     Dates: end: 20090107
  10. FUNGUARD [Concomitant]
     Indication: ANTIFUNGAL PROPHYLAXIS
     Dates: end: 20090131
  11. KETALAR [Concomitant]
     Indication: GRAFT VERSUS HOST DISEASE
     Dates: end: 20090106
  12. KETALAR [Concomitant]
     Indication: ENTEROCOLITIS
     Dates: end: 20090106
  13. MORPHINE [Concomitant]
     Indication: GRAFT VERSUS HOST DISEASE
     Dates: end: 20090131
  14. MORPHINE [Concomitant]
     Indication: ENTEROCOLITIS
     Dates: end: 20090131
  15. HANP [Concomitant]
     Indication: RENAL FAILURE
     Dates: start: 20090109, end: 20090109
  16. INOVAN [Concomitant]
     Indication: RENAL FAILURE
     Dates: start: 20090109, end: 20090131
  17. TRUVADA [Concomitant]
     Indication: ACQUIRED IMMUNODEFICIENCY SYNDROME
     Dates: end: 20090115
  18. STOCRIN [Concomitant]
     Indication: ACQUIRED IMMUNODEFICIENCY SYNDROME
     Dates: end: 20090115
  19. CELLCEPT [Concomitant]
     Indication: GRAFT VERSUS HOST DISEASE
     Dates: start: 20081215, end: 20081224
  20. URSO [Concomitant]
     Indication: PROPHYLAXIS
     Dates: end: 20090115
  21. EPIVIR [Concomitant]
     Indication: ACQUIRED IMMUNODEFICIENCY SYNDROME
     Dates: end: 20090115

REACTIONS (4)
  - Thrombotic microangiopathy [Fatal]
  - Enterococcal sepsis [Not Recovered/Not Resolved]
  - Neutrophil count decreased [Recovered/Resolved]
  - Ecthyma [Recovered/Resolved]
